FAERS Safety Report 23726636 (Version 1)
Quarter: 2024Q2

REPORT INFORMATION
  Report Type: Report from Study
  Country: ES (occurrence: ES)
  Receive Date: 20240410
  Receipt Date: 20240410
  Transmission Date: 20240715
  Serious: Yes (Death, Hospitalization)
  Sender: FDA-Public Use
  Company Number: None

PATIENT
  Age: 80 Year
  Sex: Male

DRUGS (1)
  1. CARBOPLATIN [Suspect]
     Active Substance: CARBOPLATIN
     Indication: Mesothelioma malignant
     Dosage: 450/45
     Dates: start: 20220524, end: 20220524

REACTIONS (3)
  - Mucosal inflammation [Fatal]
  - Diarrhoea [Fatal]
  - Neutropenia [Fatal]

NARRATIVE: CASE EVENT DATE: 20220601
